FAERS Safety Report 5558614-1 (Version None)
Quarter: 2007Q4

REPORT INFORMATION
  Report Type: 
  Country: None (occurrence: None)
  Receive Date: 20071214
  Receipt Date: 20070904
  Transmission Date: 20080405
  Serious: No
  Sender: FDA-Public Use
  Company Number: US-ABBOTT-07P-163-0416611-00

PATIENT
  Sex: Female
  Weight: 78.088 kg

DRUGS (6)
  1. HUMIRA [Suspect]
     Indication: CROHN'S DISEASE
     Route: 058
     Dates: start: 20070902, end: 20070902
  2. HUMIRA [Suspect]
     Route: 058
     Dates: start: 20070903, end: 20070903
  3. HUMIRA [Suspect]
     Route: 058
     Dates: start: 20070915
  4. ALL NATURAL IRON [Concomitant]
     Indication: MINERAL SUPPLEMENTATION
  5. B6 [Concomitant]
     Indication: VITAMIN SUPPLEMENTATION
  6. CYANOCOBALAMIN-TANNIN COMPLEX [Concomitant]
     Indication: VITAMIN SUPPLEMENTATION

REACTIONS (4)
  - INJECTION SITE BRUISING [None]
  - NASOPHARYNGITIS [None]
  - RHINORRHOEA [None]
  - SNEEZING [None]
